FAERS Safety Report 5735827-7 (Version None)
Quarter: 2008Q2

REPORT INFORMATION
  Report Type: 
  Country: None (occurrence: None)
  Receive Date: 20080508
  Receipt Date: 20080508
  Transmission Date: 20081010
  Serious: Yes (Death)
  Sender: FDA-Public Use
  Company Number: None

PATIENT
  Age: 58 Year
  Sex: Male
  Weight: 74.3899 kg

DRUGS (1)
  1. ISOFLURANE [Suspect]
     Indication: GENERAL ANAESTHESIA
     Dosage: INHAL  ONE TIME USE
     Route: 055
     Dates: start: 20080226, end: 20080226

REACTIONS (5)
  - ACUTE HEPATIC FAILURE [None]
  - HEPATIC NECROSIS [None]
  - HEPATOTOXICITY [None]
  - HYPOTENSION [None]
  - SEPSIS [None]
